FAERS Safety Report 11108624 (Version 2)
Quarter: 2015Q4

REPORT INFORMATION
  Report Type: Spontaneous
  Country: CA (occurrence: CA)
  Receive Date: 20150513
  Receipt Date: 20151219
  Transmission Date: 20160304
  Serious: Yes (Hospitalization, Other)
  Sender: FDA-Public Use
  Company Number: CA-AMGEN-CANSP2015036382

PATIENT
  Age: 71 Year
  Sex: Male

DRUGS (3)
  1. METHOTREXATE [Suspect]
     Active Substance: METHOTREXATE
     Indication: PRODUCT USED FOR UNKNOWN INDICATION
     Dosage: UNK
     Route: 065
  2. ENBREL [Suspect]
     Active Substance: ETANERCEPT
     Indication: RHEUMATOID ARTHRITIS
     Dosage: UNK
     Route: 065
     Dates: end: 201503
  3. SULFASALAZINE. [Concomitant]
     Active Substance: SULFASALAZINE
     Dosage: UNK

REACTIONS (9)
  - Lung disorder [Recovered/Resolved]
  - Influenza [Unknown]
  - Fatigue [Unknown]
  - Asthenia [Unknown]
  - Hepatic enzyme increased [Recovered/Resolved]
  - Pneumonia [Unknown]
  - Cystitis [Unknown]
  - Vertigo [Unknown]
  - Kidney infection [Unknown]
